FAERS Safety Report 6128777-8 (Version None)
Quarter: 2009Q1

REPORT INFORMATION
  Report Type: 
  Country: None (occurrence: None)
  Receive Date: 20090320
  Receipt Date: 20090312
  Transmission Date: 20090719
  Serious: Yes (Other)
  Sender: FDA-Public Use
  Company Number: 203089

PATIENT
  Age: 74 Year
  Sex: Female

DRUGS (17)
  1. DEXMEDETOMIDINE [Suspect]
     Indication: SEDATIVE THERAPY
     Dosage: 15-20 UG/HR UNKNOWN INTRAVENOUS; 10 UG/HR'; 0.25 UG/KR HR; 0.52 UG/KG/HR; 0.26 UG/KG/HR
     Route: 042
  2. FENTANYL-25 [Suspect]
     Indication: INDUCTION OF ANAESTHESIA
     Dosage: 200 MCG  INTRAVENOUS DRIP; 900 MCG UNKNOWN; 50 MCG/HR UNKNOWN
     Route: 041
     Dates: start: 20080808, end: 20080808
  3. FENTANYL-25 [Suspect]
     Indication: MAINTENANCE OF ANAESTHESIA
     Dosage: 200 MCG  INTRAVENOUS DRIP; 900 MCG UNKNOWN; 50 MCG/HR UNKNOWN
     Route: 041
     Dates: start: 20080808, end: 20080808
  4. DORMICUM [Concomitant]
  5. SEVOFRANE [Concomitant]
  6. ULTIVA [Concomitant]
  7. PROPOFOL [Concomitant]
  8. MUSCULAX [Concomitant]
  9. HUMULIN R [Concomitant]
  10. SOLITA T [Concomitant]
  11. SOLU-CORTEF [Concomitant]
  12. FOSMICIN B [Concomitant]
  13. ADONA [Concomitant]
  14. TRANSAMIN [Concomitant]
  15. RED BLOOD CELLS [Concomitant]
  16. CORTICOSTEROIDS [Concomitant]
  17. THYRODIN [Concomitant]

REACTIONS (10)
  - ANXIETY POSTOPERATIVE [None]
  - BLOOD PRESSURE FLUCTUATION [None]
  - BLOOD PRESSURE INCREASED [None]
  - INSOMNIA [None]
  - POTENTIATING DRUG INTERACTION [None]
  - RESPIRATORY ACIDOSIS [None]
  - RESPIRATORY ARREST [None]
  - RESPIRATORY DEPRESSION [None]
  - SEDATION [None]
  - UPPER AIRWAY OBSTRUCTION [None]
